FAERS Safety Report 4684963-5 (Version None)
Quarter: 2005Q2

REPORT INFORMATION
  Report Type: 
  Country: None (occurrence: None)
  Receive Date: 20050608
  Receipt Date: 20050524
  Transmission Date: 20051028
  Serious: Yes (Disabling)
  Sender: FDA-Public Use
  Company Number: FI-AMGEN-UK135518

PATIENT
  Sex: Female
  Weight: 51 kg

DRUGS (1)
  1. ARANESP [Suspect]
     Indication: RENAL FAILURE CHRONIC
     Route: 042
     Dates: start: 20030917

REACTIONS (5)
  - ANAEMIA [None]
  - BONE MARROW DEPRESSION [None]
  - DERMATITIS [None]
  - DRUG INEFFECTIVE [None]
  - FOLLICULITIS [None]
